FAERS Safety Report 9887319 (Version 2)
Quarter: 2014Q1

REPORT INFORMATION
  Report Type: Report from Study
  Country: DE (occurrence: DE)
  Receive Date: 20140211
  Receipt Date: 20140224
  Transmission Date: 20141002
  Serious: Yes (Hospitalization)
  Sender: FDA-Public Use
  Company Number: DE-ROCHE-1344057

PATIENT
  Age: 46 Year
  Sex: Female

DRUGS (7)
  1. TOCILIZUMAB [Suspect]
     Indication: RHEUMATOID ARTHRITIS
     Dosage: DATE OF LAST DOSE OF TOCILIZUMAB PRIOR TO THE EVENTS: 15/NOV/2012
     Route: 065
     Dates: start: 201001
  2. METHOTREXATE [Concomitant]
     Indication: RHEUMATOID ARTHRITIS
     Dosage: GIVEN AT DIFFERENT DOSAGES: 5 MG AND 10 MG.
     Route: 048
     Dates: start: 200509, end: 201102
  3. METHOTREXATE [Concomitant]
     Route: 051
     Dates: start: 201110, end: 201201
  4. PREDNISOLON [Concomitant]
     Indication: RHEUMATOID ARTHRITIS
     Dosage: GIVEN AT DIFFERENT DOSAGES, LATEST DOSAGE:2 MG/DAY
     Route: 065
     Dates: start: 200509, end: 20121217
  5. EUTHYROX [Concomitant]
     Route: 065
  6. QUENSYL [Concomitant]
     Route: 065
  7. RITUXIMAB [Concomitant]
     Indication: RHEUMATOID ARTHRITIS
     Route: 065

REACTIONS (3)
  - Osteomyelitis [Recovered/Resolved]
  - Cellulitis [Recovered/Resolved]
  - Decubitus ulcer [Recovered/Resolved]
